FAERS Safety Report 4688150-6 (Version None)
Quarter: 2005Q2

REPORT INFORMATION
  Report Type: 
  Country: None (occurrence: None)
  Receive Date: 20050609
  Receipt Date: 20050526
  Transmission Date: 20051028
  Serious: Yes (Other)
  Sender: FDA-Public Use
  Company Number: 232175K05USA

PATIENT
  Age: 37 Year
  Sex: Female
  Weight: 73.4827 kg

DRUGS (2)
  1. REBIF [Suspect]
     Indication: MULTIPLE SCLEROSIS
     Dosage: 44 MCG, 3 IN 1 WEEKS, SUBCUTANEOUS
     Route: 058
     Dates: start: 20020817, end: 20050501
  2. NEURONTIN [Concomitant]

REACTIONS (8)
  - CONDITION AGGRAVATED [None]
  - HEPATIC LESION [None]
  - METASTASES TO RECTUM [None]
  - METASTASIS [None]
  - MULTIPLE SCLEROSIS [None]
  - NEOPLASM MALIGNANT [None]
  - PRECANCEROUS CELLS PRESENT [None]
  - SMEAR CERVIX ABNORMAL [None]
